FAERS Safety Report 12730320 (Version 2)
Quarter: 2018Q1

REPORT INFORMATION
  Report Type: Report from Study
  Country: JP (occurrence: JP)
  Receive Date: 20160909
  Receipt Date: 20180202
  Transmission Date: 20180508
  Serious: Yes (Other)
  Sender: FDA-Public Use
  Company Number: JP-ASTRAZENECA-2016SE96163

PATIENT
  Age: 26118 Day
  Sex: Female

DRUGS (18)
  1. JARDIANCE [Concomitant]
     Active Substance: EMPAGLIFLOZIN
     Dosage: 10.0MG UNKNOWN
     Route: 048
     Dates: start: 20170509
  2. METGLUCO [Concomitant]
     Active Substance: METFORMIN HYDROCHLORIDE
     Indication: TYPE 2 DIABETES MELLITUS
     Dosage: 1500.0MG UNKNOWN
     Route: 048
  3. PIOGLITAZONE HYDROCHLORIDE. [Concomitant]
     Active Substance: PIOGLITAZONE HYDROCHLORIDE
     Route: 048
     Dates: start: 20170404
  4. ONGLYZA [Suspect]
     Active Substance: SAXAGLIPTIN HYDROCHLORIDE
     Indication: TYPE 2 DIABETES MELLITUS
     Route: 048
     Dates: start: 20141217
  5. RIVASTIGMINE. [Concomitant]
     Active Substance: RIVASTIGMINE
     Indication: DEMENTIA
     Route: 062
  6. GASTER [Concomitant]
     Active Substance: FAMOTIDINE
     Route: 048
  7. AZILSARTAN [Concomitant]
     Active Substance: AZILSARTAN KAMEDOXOMIL
     Indication: HYPERTENSION
     Route: 048
  8. AMLODIPINE [Concomitant]
     Active Substance: AMLODIPINE BESYLATE
     Indication: HYPERTENSION
     Route: 048
  9. ALDOMET [Concomitant]
     Active Substance: METHYLDOPA
     Indication: HYPERTENSION
     Route: 048
  10. CALCIUM [Concomitant]
     Active Substance: CALCIUM
     Indication: HYPERTENSION
     Route: 048
  11. AMARYL [Concomitant]
     Active Substance: GLIMEPIRIDE
     Indication: TYPE 2 DIABETES MELLITUS
     Dosage: 5.0MG UNKNOWN
     Route: 048
  12. YAKUBAN [Concomitant]
     Active Substance: FLURBIPROFEN
     Indication: BACK PAIN
     Route: 061
  13. ARICEPT [Concomitant]
     Active Substance: DONEPEZIL HYDROCHLORIDE
     Indication: DEMENTIA
     Route: 048
  14. MUCOSTA [Concomitant]
     Active Substance: REBAMIPIDE
     Route: 048
  15. LOXONIN [Concomitant]
     Active Substance: LOXOPROFEN SODIUM
     Route: 061
  16. CADUET [Concomitant]
     Active Substance: AMLODIPINE BESYLATE\ATORVASTATIN CALCIUM
     Route: 048
  17. ACTOS [Concomitant]
     Active Substance: PIOGLITAZONE HYDROCHLORIDE
     Indication: TYPE 2 DIABETES MELLITUS
     Dosage: 15.0MG UNKNOWN
     Route: 048
     Dates: end: 20150415
  18. BAYASPIRIN [Concomitant]
     Active Substance: ASPIRIN
     Route: 048

REACTIONS (4)
  - Gastritis [Recovering/Resolving]
  - Dementia [Recovering/Resolving]
  - Cerebral infarction [Recovering/Resolving]
  - Cervicobrachial syndrome [Recovering/Resolving]

NARRATIVE: CASE EVENT DATE: 20160518
